FAERS Safety Report 8996854 (Version 1)
Quarter: 2012Q4

REPORT INFORMATION
  Report Type: Spontaneous
  Country: US (occurrence: None)
  Receive Date: 20121228
  Receipt Date: 20121228
  Transmission Date: 20130627
  Serious: Yes (Hospitalization)
  Sender: FDA-Public Use
  Company Number: None

PATIENT
  Age: 79 Year
  Sex: Female
  Weight: 65.77 kg

DRUGS (1)
  1. OMEPRAZOLE DELAYED RELEASE [Suspect]
     Dosage: 40 mg twice daily
     Dates: start: 20120910

REACTIONS (6)
  - Flushing [None]
  - Palpitations [None]
  - Middle insomnia [None]
  - Dizziness [None]
  - Nervousness [None]
  - Hypertension [None]
